FAERS Safety Report 12176426 (Version 1)
Quarter: 2016Q1

REPORT INFORMATION
  Report Type: Other
  Country: US (occurrence: US)
  Receive Date: 20160314
  Receipt Date: 20160314
  Transmission Date: 20160526
  Serious: Yes (Life-Threatening, Hospitalization)
  Sender: FDA-Public Use
  Company Number: US-WARNER CHILCOTT, LLC-1049001

PATIENT
  Age: 70 Year
  Sex: Female
  Weight: 86.82 kg

DRUGS (2)
  1. PREMARIN VAGINAL [Suspect]
     Active Substance: ESTROGENS, CONJUGATED
     Dates: start: 201205, end: 201401
  2. ESTRACE [Suspect]
     Active Substance: ESTRADIOL
     Indication: ATROPHIC VULVOVAGINITIS
     Route: 067

REACTIONS (5)
  - Pulmonary embolism [Recovering/Resolving]
  - Deep vein thrombosis [Recovering/Resolving]
  - Chest pain [Not Recovered/Not Resolved]
  - Dyspnoea [Not Recovered/Not Resolved]
  - Back pain [Recovering/Resolving]

NARRATIVE: CASE EVENT DATE: 20140731
